FAERS Safety Report 25906703 (Version 1)
Quarter: 2025Q4

REPORT INFORMATION
  Report Type: Spontaneous
  Country: MX (occurrence: MX)
  Receive Date: 20251010
  Receipt Date: 20251010
  Transmission Date: 20260117
  Serious: Yes (Other)
  Sender: PFIZER
  Company Number: MX-PFIZER INC-PV202500118994

PATIENT
  Age: 60 Year
  Sex: Female

DRUGS (2)
  1. LORLATINIB [Suspect]
     Active Substance: LORLATINIB
     Indication: Lung adenocarcinoma
     Dosage: UNK
     Route: 048
     Dates: start: 202303
  2. LORLATINIB [Suspect]
     Active Substance: LORLATINIB
     Indication: Metastases to central nervous system

REACTIONS (7)
  - Metastases to central nervous system [Unknown]
  - Malignant neoplasm progression [Unknown]
  - Hemiparesis [Recovering/Resolving]
  - Neuropathy peripheral [Unknown]
  - Infected neoplasm [Unknown]
  - Dyslipidaemia [Unknown]
  - Oedema peripheral [Unknown]
